FAERS Safety Report 8366645-1 (Version None)
Quarter: 2012Q2

REPORT INFORMATION
  Report Type: 
  Country: None (occurrence: None)
  Receive Date: 20120517
  Receipt Date: 20120503
  Transmission Date: 20120825
  Serious: Yes (Other)
  Sender: FDA-Public Use
  Company Number: FR-JNJFOC-20120511014

PATIENT
  Sex: Female

DRUGS (1)
  1. ACETAMINOPHEN AND TRAMADOL HCL [Suspect]
     Indication: PRODUCT USED FOR UNKNOWN INDICATION
     Route: 048

REACTIONS (3)
  - MELAENA [None]
  - ELECTROCARDIOGRAM QRS COMPLEX ABNORMAL [None]
  - BUNDLE BRANCH BLOCK LEFT [None]
